APPROVED DRUG PRODUCT: CYTARABINE
Active Ingredient: CYTARABINE
Strength: 20MG/ML
Dosage Form/Route: INJECTABLE;INJECTION
Application: A071868 | Product #001 | TE Code: AP
Applicant: HOSPIRA INC
Approved: Jun 4, 1990 | RLD: No | RS: Yes | Type: RX